FAERS Safety Report 24162880 (Version 5)
Quarter: 2024Q4

REPORT INFORMATION
  Report Type: Spontaneous
  Country: AT (occurrence: AT)
  Receive Date: 20240801
  Receipt Date: 20241111
  Transmission Date: 20250115
  Serious: Yes (Other)
  Sender: EXELIXIS
  Company Number: AT-IPSEN Group, Research and Development-2024-04513

PATIENT
  Age: 44 Year
  Sex: Male
  Weight: 72 kg

DRUGS (3)
  1. CABOMETYX [Suspect]
     Active Substance: CABOZANTINIB S-MALATE
     Indication: Adrenocortical carcinoma
     Dosage: 60 MG, QD
     Route: 048
     Dates: start: 20240321, end: 20240416
  2. CABOMETYX [Suspect]
     Active Substance: CABOZANTINIB S-MALATE
     Indication: Off label use
     Dosage: 40 MG, QD
     Route: 048
     Dates: start: 20240428, end: 20240620
  3. CABOMETYX [Suspect]
     Active Substance: CABOZANTINIB S-MALATE
     Dosage: ALTERNATING 20 MG AND 40 MG
     Route: 065
     Dates: start: 20240621

REACTIONS (11)
  - Cardiac failure [Recovering/Resolving]
  - Malignant neoplasm progression [Unknown]
  - Taste disorder [Unknown]
  - Palmar-plantar erythrodysaesthesia syndrome [Recovered/Resolved]
  - Fatigue [Unknown]
  - Bronchitis [Unknown]
  - Sinusitis [Unknown]
  - General physical health deterioration [Unknown]
  - Weight decreased [Unknown]
  - Off label use [Unknown]
  - Off label use [Unknown]

NARRATIVE: CASE EVENT DATE: 20240321
